FAERS Safety Report 5989751-5 (Version None)
Quarter: 2008Q4

REPORT INFORMATION
  Report Type: 
  Country: None (occurrence: None)
  Receive Date: 20081209
  Receipt Date: 20081126
  Transmission Date: 20090506
  Serious: Yes (Hospitalization, Other)
  Sender: FDA-Public Use
  Company Number: 2008-04248

PATIENT
  Age: 74 Year
  Sex: Female

DRUGS (6)
  1. VELCADE [Suspect]
     Indication: MULTIPLE MYELOMA
     Dosage: 1.3 MG/M2,  INTRAVENOUS
     Route: 042
     Dates: start: 20081031, end: 20081103
  2. ACYCLOVIR [Suspect]
     Indication: PROPHYLAXIS
  3. WARFARIN SODIUM [Suspect]
     Dosage: ORAL
     Route: 048
  4. DECADRON [Concomitant]
  5. ALLOPURINOL [Concomitant]
  6. JUSO (SODIUM BICARBONATE) [Concomitant]

REACTIONS (5)
  - CARDIAC DISORDER [None]
  - DRUG INTERACTION [None]
  - MELAENA [None]
  - PLEURAL EFFUSION [None]
  - TUMOUR LYSIS SYNDROME [None]
